FAERS Safety Report 5051809-5 (Version None)
Quarter: 2006Q3

REPORT INFORMATION
  Report Type: 
  Country: None (occurrence: None)
  Receive Date: 20060712
  Receipt Date: 20060712
  Transmission Date: 20061208
  Serious: No
  Sender: FDA-Public Use
  Company Number: None

PATIENT
  Age: 60 Year
  Sex: Female
  Weight: 61.2356 kg

DRUGS (1)
  1. VANOS [Suspect]
     Indication: MALIGNANT TUMOUR EXCISION
     Dosage: 75 GR ONCE DERMAL
     Dates: start: 20060522

REACTIONS (4)
  - BURNING SENSATION [None]
  - PRURITUS [None]
  - RASH PAPULAR [None]
  - SKIN DISORDER [None]
